FAERS Safety Report 22898105 (Version 2)
Quarter: 2024Q3

REPORT INFORMATION
  Report Type: Other
  Country: CA (occurrence: CA)
  Receive Date: 20230903
  Receipt Date: 20240722
  Transmission Date: 20241016
  Serious: Yes (Other)
  Sender: APOTEX
  Company Number: CA-APOTEX-2023AP012742

PATIENT
  Age: 51 Year
  Sex: Female
  Weight: 99 kg

DRUGS (15)
  1. DASATINIB [Suspect]
     Active Substance: DASATINIB
     Indication: Product used for unknown indication
     Dosage: 70 MILLIGRAM, QD
     Route: 048
  2. DASATINIB [Suspect]
     Active Substance: DASATINIB
     Dosage: 70 MILLIGRAM, QD
     Route: 065
  3. IMATINIB [Suspect]
     Active Substance: IMATINIB
     Indication: Product used for unknown indication
     Dosage: 400 MILLIGRAM, QD
     Route: 065
  4. BOSUTINIB [Suspect]
     Active Substance: BOSUTINIB
     Indication: Product used for unknown indication
     Dosage: 400 MILLIGRAM, QD
     Route: 048
  5. BOSUTINIB [Suspect]
     Active Substance: BOSUTINIB
     Dosage: 100 MILLIGRAM, QD
     Route: 048
  6. NILOTINIB [Suspect]
     Active Substance: NILOTINIB
     Indication: Product used for unknown indication
     Dosage: 300 MILLIGRAM, BID
     Route: 048
  7. ASCIMINIB [Suspect]
     Active Substance: ASCIMINIB
     Indication: Chronic myeloid leukaemia
     Dosage: 40 MILLIGRAM, BID
     Route: 048
  8. ACRIVASTINE [Concomitant]
     Active Substance: ACRIVASTINE
     Indication: Product used for unknown indication
     Dosage: 25 MILLIGRAM, QD
     Route: 065
  9. ALLOPURINOL [Concomitant]
     Active Substance: ALLOPURINOL
     Indication: Rash maculo-papular
     Dosage: UNK
     Route: 065
  10. LASIX [Concomitant]
     Active Substance: FUROSEMIDE
     Indication: Product used for unknown indication
     Dosage: 20 MILLIGRAM, QD
     Route: 065
  11. LASIX [Concomitant]
     Active Substance: FUROSEMIDE
     Dosage: 40 MILLIGRAM, QD
     Route: 065
  12. PANTOPRAZOLE SODIUM [Concomitant]
     Active Substance: PANTOPRAZOLE SODIUM
     Indication: Gastrooesophageal reflux disease
     Dosage: 40 MILLIGRAM, QD
     Route: 048
  13. PREDNISONE [Concomitant]
     Active Substance: PREDNISONE
     Indication: Product used for unknown indication
     Dosage: 50 MILLIGRAM
     Route: 065
  14. SYNTHROID [Concomitant]
     Active Substance: LEVOTHYROXINE SODIUM
     Indication: Product used for unknown indication
     Dosage: 0.112 MILLIGRAM, QD
     Route: 065
  15. SYNTHROID [Concomitant]
     Active Substance: LEVOTHYROXINE SODIUM
     Dosage: UNK
     Route: 065

REACTIONS (20)
  - Lip swelling [Unknown]
  - Seronegative arthritis [Unknown]
  - Bone pain [Unknown]
  - C-reactive protein increased [Unknown]
  - Early satiety [Unknown]
  - Platelet count abnormal [Unknown]
  - Oedema [Unknown]
  - Urticaria [Unknown]
  - Abdominal pain [Unknown]
  - Dyspepsia [Unknown]
  - Malaise [Unknown]
  - Nausea [Unknown]
  - Hypertransaminasaemia [Unknown]
  - Rash [Unknown]
  - Headache [Unknown]
  - Dyspnoea [Unknown]
  - Blood bilirubin increased [Unknown]
  - Asthenia [Unknown]
  - Pleural effusion [Unknown]
  - Pericardial effusion [Unknown]
